FAERS Safety Report 14314135 (Version 1)
Quarter: 2017Q4

REPORT INFORMATION
  Report Type: Spontaneous
  Country: US (occurrence: US)
  Receive Date: 20171220
  Receipt Date: 20171220
  Transmission Date: 20180321
  Serious: Yes (Other)
  Sender: FDA-Public Use
  Company Number: None

PATIENT
  Age: 54 Year
  Sex: Male

DRUGS (2)
  1. RASUVO [Suspect]
     Active Substance: METHOTREXATE SODIUM
     Indication: INFLAMMATION
     Route: 058
     Dates: start: 20170614
  2. RASUVO [Suspect]
     Active Substance: METHOTREXATE SODIUM
     Indication: MYOPATHY
     Route: 058
     Dates: start: 20170614

REACTIONS (1)
  - Feeling hot [None]

NARRATIVE: CASE EVENT DATE: 20171019
